FAERS Safety Report 7053189-2 (Version None)
Quarter: 2010Q4

REPORT INFORMATION
  Report Type: 
  Country: None (occurrence: None)
  Receive Date: 20101020
  Receipt Date: 20101009
  Transmission Date: 20110411
  Serious: Yes (Hospitalization)
  Sender: FDA-Public Use
  Company Number: CA-JNJFOC-20101003407

PATIENT
  Sex: Male
  Weight: 100 kg

DRUGS (9)
  1. REMICADE [Suspect]
     Indication: COLITIS ULCERATIVE
     Dosage: DOSE:500
     Route: 042
  2. REMICADE [Suspect]
     Dosage: DOSE:500
     Route: 042
  3. REMICADE [Suspect]
     Dosage: DOSE:500
     Route: 042
  4. AZATHIOPRINE [Concomitant]
  5. PREDNISONE [Concomitant]
  6. METOPROLOL [Concomitant]
  7. RAMIPRIL [Concomitant]
  8. ASPIRIN [Concomitant]
  9. EFFEXOR [Concomitant]

REACTIONS (1)
  - SKIN LACERATION [None]
